FAERS Safety Report 7275142-6 (Version None)
Quarter: 2011Q1

REPORT INFORMATION
  Report Type: 
  Country: None (occurrence: None)
  Receive Date: 20110204
  Receipt Date: 20110124
  Transmission Date: 20110831
  Serious: Yes (Hospitalization, Other)
  Sender: FDA-Public Use
  Company Number: PHFR2011GB00549

PATIENT
  Sex: Female

DRUGS (8)
  1. CLOZARIL [Suspect]
     Dosage: 100 MG MANE, 250 MG NOCTE
     Route: 048
     Dates: start: 20110104
  2. CLOZARIL [Suspect]
     Dosage: 250 MG, UNK
     Route: 048
  3. BECLOMETHASONE DIPROPIONATE [Concomitant]
     Indication: ASTHMA
     Dosage: 2 PUFFS PER DAY
  4. CLOZARIL [Suspect]
     Indication: SCHIZOPHRENIA
     Dosage: 12.5 MG, UNK
     Route: 048
     Dates: start: 20101210
  5. RISPERIDONE [Concomitant]
     Indication: SCHIZOPHRENIA
     Dosage: 4 MG, UNK
     Route: 048
  6. ALBUTEROL [Concomitant]
     Indication: ASTHMA
     Dosage: 2 PUFFS OF 100 UG 4 TIMES A DAY
  7. CLOZARIL [Suspect]
     Dosage: 300 MG, UNK
     Route: 048
     Dates: start: 20101231
  8. VENLAFAXINE [Concomitant]
     Indication: DEPRESSIVE SYMPTOM
     Dosage: 225 MG, UNK
     Route: 048

REACTIONS (5)
  - FATIGUE [None]
  - NAUSEA [None]
  - URINARY INCONTINENCE [None]
  - GRAND MAL CONVULSION [None]
  - TONGUE BITING [None]
